FAERS Safety Report 7884076-5 (Version None)
Quarter: 2011Q4

REPORT INFORMATION
  Report Type: 
  Country: None (occurrence: None)
  Receive Date: 20111102
  Receipt Date: 20111018
  Transmission Date: 20120403
  Serious: Yes (Hospitalization, Other)
  Sender: FDA-Public Use
  Company Number: ES-SANOFI-AVENTIS-2011SA068494

PATIENT
  Age: 71 Year
  Sex: Female

DRUGS (12)
  1. OXALIPLATIN [Suspect]
     Route: 065
  2. DEXAMETHASONE [Suspect]
     Route: 065
  3. OXALIPLATIN [Suspect]
     Route: 065
  4. CAPECITABINE [Suspect]
     Route: 065
  5. DEXAMETHASONE [Suspect]
     Route: 065
  6. CAPECITABINE [Suspect]
     Route: 065
  7. DEXAMETHASONE [Suspect]
     Route: 065
  8. DEXAMETHASONE [Suspect]
     Route: 065
  9. OXALIPLATIN [Suspect]
     Route: 065
  10. OXALIPLATIN [Suspect]
     Route: 065
  11. CAPECITABINE [Suspect]
     Route: 065
  12. CAPECITABINE [Suspect]
     Route: 065

REACTIONS (9)
  - ACTIVITIES OF DAILY LIVING IMPAIRED [None]
  - FOOD AVERSION [None]
  - MOOD ALTERED [None]
  - OSTEOPOROTIC FRACTURE [None]
  - SOCIAL AVOIDANT BEHAVIOUR [None]
  - FATIGUE [None]
  - SPINAL COMPRESSION FRACTURE [None]
  - BACK PAIN [None]
  - DECREASED APPETITE [None]
